FAERS Safety Report 15789434 (Version 2)
Quarter: 2019Q1

REPORT INFORMATION
  Report Type: Spontaneous
  Country: AU (occurrence: AU)
  Receive Date: 20190104
  Receipt Date: 20190110
  Transmission Date: 20190417
  Serious: Yes (Other)
  Sender: FDA-Public Use
  Company Number: AU-GLAXOSMITHKLINE-AU2018GSK235674

PATIENT
  Sex: Male

DRUGS (1)
  1. NICOTINELL [Suspect]
     Active Substance: NICOTINE
     Indication: SMOKING CESSATION THERAPY
     Dosage: UNK
     Route: 062

REACTIONS (7)
  - Loss of personal independence in daily activities [Recovered/Resolved]
  - Impaired driving ability [Recovered/Resolved]
  - Memory impairment [Unknown]
  - Asthenia [Unknown]
  - Malaise [Unknown]
  - Incorrect product administration duration [Unknown]
  - Dizziness [Unknown]

NARRATIVE: CASE EVENT DATE: 2018
